FAERS Safety Report 9204636 (Version 2)
Quarter: 2013Q2

REPORT INFORMATION
  Report Type: Spontaneous
  Country: US (occurrence: None)
  Receive Date: 20130329
  Receipt Date: 20130423
  Transmission Date: 20140414
  Serious: Yes (Hospitalization, Other)
  Sender: FDA-Public Use
  Company Number: JPI-P-030899

PATIENT
  Age: 52 Year
  Sex: Female
  Weight: 64.86 kg

DRUGS (1)
  1. XYREM [Suspect]
     Indication: NARCOLEPSY
     Route: 048
     Dates: start: 200606

REACTIONS (4)
  - Restless legs syndrome [None]
  - Colitis ulcerative [None]
  - Fall [None]
  - Tendon rupture [None]
